FAERS Safety Report 6964846-8 (Version None)
Quarter: 2010Q3

REPORT INFORMATION
  Report Type: 
  Country: None (occurrence: None)
  Receive Date: 20100903
  Receipt Date: 20100825
  Transmission Date: 20110219
  Serious: Yes (Hospitalization)
  Sender: FDA-Public Use
  Company Number: JP-JNJFOC-20100209842

PATIENT
  Age: 51 Year
  Sex: Female
  Weight: 50 kg

DRUGS (11)
  1. REMICADE [Suspect]
     Indication: RHEUMATOID ARTHRITIS
     Route: 042
  2. REMICADE [Suspect]
     Route: 042
  3. PREDONINE [Suspect]
     Indication: RHEUMATOID ARTHRITIS
     Route: 048
  4. RHEUMATREX [Suspect]
     Indication: RHEUMATOID ARTHRITIS
     Route: 048
  5. CRESTOR [Concomitant]
     Route: 048
  6. ISCOTIN [Concomitant]
  7. PYDOXAL [Concomitant]
  8. BONALON [Concomitant]
     Route: 048
  9. SELBEX [Concomitant]
     Route: 048
  10. INDOMETHACIN SODIUM [Concomitant]
     Dosage: ^2CAP^
     Route: 048
  11. ERYTHROMYCIN [Concomitant]

REACTIONS (2)
  - CHRONIC RESPIRATORY FAILURE [None]
  - PNEUMOCYSTIS JIROVECI PNEUMONIA [None]
